FAERS Safety Report 5518764-2 (Version None)
Quarter: 2007Q4

REPORT INFORMATION
  Report Type: 
  Country: None (occurrence: None)
  Receive Date: 20071113
  Receipt Date: 20071029
  Transmission Date: 20080405
  Serious: Yes (Other)
  Sender: FDA-Public Use
  Company Number: S07-NLD-05680-01

PATIENT
  Age: 64 Year
  Sex: Female

DRUGS (7)
  1. LEXAPRO [Suspect]
     Indication: DEPRESSION
     Dates: start: 20070725, end: 20070808
  2. NOVOMIX (INSULIN ASPART) [Suspect]
     Indication: DIABETES MELLITUS
     Dosage: 100 IU, IM
     Route: 030
  3. OXAZEPAM [Concomitant]
  4. ACETYLSALICYLIC ACID SRT [Concomitant]
  5. NEBIVOLOL [Concomitant]
  6. SIMVASTATIN [Concomitant]
  7. RAMIPRIL [Concomitant]

REACTIONS (2)
  - DRUG INTERACTION [None]
  - HYPOGLYCAEMIA [None]
